FAERS Safety Report 16387043 (Version 3)
Quarter: 2020Q1

REPORT INFORMATION
  Report Type: Report from Study
  Country: JP (occurrence: JP)
  Receive Date: 20190604
  Receipt Date: 20200330
  Transmission Date: 20200409
  Serious: Yes (Hospitalization)
  Sender: FDA-Public Use
  Company Number: JP-ACTELION-A-CH2019-190931

PATIENT
  Age: 51 Year
  Sex: Female

DRUGS (6)
  1. SPIRONOLACTONE. [Concomitant]
     Active Substance: SPIRONOLACTONE
  2. ADCIRCA [Concomitant]
     Active Substance: TADALAFIL
  3. SAMSCA [Concomitant]
     Active Substance: TOLVAPTAN
  4. OPSUMIT [Suspect]
     Active Substance: MACITENTAN
     Indication: PORTOPULMONARY HYPERTENSION
     Dosage: 10 MG, QD
     Route: 048
     Dates: start: 20160616
  5. FUROSEMIDE. [Concomitant]
     Active Substance: FUROSEMIDE
  6. BARACLUDE [Concomitant]
     Active Substance: ENTECAVIR

REACTIONS (5)
  - Pulmonary tuberculosis [Unknown]
  - Liver transplant [Unknown]
  - Hepatic function abnormal [Unknown]
  - Platelet count decreased [Unknown]
  - Blood bilirubin increased [Unknown]

NARRATIVE: CASE EVENT DATE: 20161214
